FAERS Safety Report 10246563 (Version 1)
Quarter: 2014Q2

REPORT INFORMATION
  Report Type: Spontaneous
  Country: CH (occurrence: CH)
  Receive Date: 20140619
  Receipt Date: 20140619
  Transmission Date: 20141212
  Serious: Yes (Hospitalization)
  Sender: FDA-Public Use
  Company Number: CH-ASTRAZENECA-2014SE44270

PATIENT
  Age: 70 Year
  Sex: Male
  Weight: 75.5 kg

DRUGS (11)
  1. BELOC ZOK [Suspect]
     Route: 048
  2. RASILEZ [Suspect]
     Indication: HYPERTENSION
     Route: 048
     Dates: start: 2013, end: 20140408
  3. EXFORGE HCT [Suspect]
     Indication: HYPERTENSION
     Dosage: 10/160/25 MG, 1 DF DAILY
     Route: 048
     Dates: start: 2013
  4. PROGRAF [Suspect]
     Indication: PROPHYLAXIS AGAINST TRANSPLANT REJECTION
     Route: 048
  5. ASPIRIN CARDIO [Concomitant]
     Route: 048
  6. CRESTOR [Concomitant]
     Route: 048
  7. RANEXA [Concomitant]
     Route: 048
  8. URSOCHOL [Concomitant]
     Route: 048
  9. ESOMEP MUPS [Concomitant]
     Route: 048
  10. LANTUS [Concomitant]
     Route: 058
  11. INSULIN NOVORAPID [Concomitant]
     Route: 058

REACTIONS (4)
  - Hyperkalaemia [Recovered/Resolved]
  - Renal failure chronic [Recovered/Resolved]
  - Hypomagnesaemia [Unknown]
  - Bradycardia [Recovered/Resolved]
